FAERS Safety Report 5314095-4 (Version None)
Quarter: 2007Q2

REPORT INFORMATION
  Report Type: 
  Country: None (occurrence: None)
  Receive Date: 20070501
  Receipt Date: 20070419
  Transmission Date: 20071010
  Serious: Yes (Other)
  Sender: FDA-Public Use
  Company Number: US-PFIZER INC-2007032294

PATIENT
  Age: 84 Year

DRUGS (1)
  1. LIPITOR [Suspect]

REACTIONS (1)
  - HEPATITIS [None]
